FAERS Safety Report 20746177 (Version 2)
Quarter: 2022Q3

REPORT INFORMATION
  Report Type: Report from Study
  Country: US (occurrence: US)
  Receive Date: 20220425
  Receipt Date: 20220722
  Transmission Date: 20221027
  Serious: No
  Sender: FDA-Public Use
  Company Number: US-MIRM-000345

PATIENT
  Age: 8 Year
  Sex: Female

DRUGS (4)
  1. LIVMARLI [Suspect]
     Active Substance: MARALIXIBAT CHLORIDE
     Indication: Pruritus
     Route: 048
     Dates: start: 20220211, end: 20220217
  2. LIVMARLI [Suspect]
     Active Substance: MARALIXIBAT CHLORIDE
     Indication: Pruritus
     Route: 048
     Dates: start: 20220218
  3. 1776253 (GLOBALC3Sep19): Vitamin D [Concomitant]
     Indication: Product used for unknown indication
  4. 1328139 (GLOBALC3Sep19): Rifampin [Concomitant]
     Indication: Product used for unknown indication

REACTIONS (9)
  - Haematochezia [Unknown]
  - Vomiting projectile [Unknown]
  - Faeces soft [Unknown]
  - Diarrhoea [Unknown]
  - Abdominal pain upper [Unknown]
  - Vomiting [Unknown]
  - Pain [Unknown]
  - Defaecation urgency [Unknown]
  - Clostridium difficile colitis [Unknown]

NARRATIVE: CASE EVENT DATE: 20220310
